FAERS Safety Report 21401881 (Version 1)
Quarter: 2022Q4

REPORT INFORMATION
  Report Type: Report from Study
  Country: US (occurrence: US)
  Receive Date: 20221003
  Receipt Date: 20221003
  Transmission Date: 20230113
  Serious: Yes (Other)
  Sender: FDA-Public Use
  Company Number: US-BRISTOL-MYERS SQUIBB COMPANY-2022-113647

PATIENT
  Age: 68 Year
  Sex: Male
  Weight: 104 kg

DRUGS (2)
  1. REVLIMID [Suspect]
     Active Substance: LENALIDOMIDE
     Indication: Plasma cell myeloma
     Dosage: 25 MG ON DAYS 1-21 EVERY 28 DAYS
     Route: 048
     Dates: start: 20220509
  2. REVLIMID [Suspect]
     Active Substance: LENALIDOMIDE
     Route: 065

REACTIONS (3)
  - Eye swelling [Recovering/Resolving]
  - Lip swelling [Recovering/Resolving]
  - Swelling face [Recovering/Resolving]
